FAERS Safety Report 20099309 (Version 1)
Quarter: 2021Q4

REPORT INFORMATION
  Report Type: Spontaneous
  Country: FR (occurrence: FR)
  Receive Date: 20211122
  Receipt Date: 20211122
  Transmission Date: 20220303
  Serious: Yes (Hospitalization)
  Sender: FDA-Public Use
  Company Number: None

PATIENT
  Age: 87 Year
  Sex: Female

DRUGS (2)
  1. METRONIDAZOLE [Suspect]
     Active Substance: METRONIDAZOLE
     Indication: Infection
     Route: 065
     Dates: start: 20210907
  2. AZTREONAM [Suspect]
     Active Substance: AZTREONAM
     Indication: Infection
     Route: 065
     Dates: start: 20210901

REACTIONS (1)
  - Pyrexia [Not Recovered/Not Resolved]

NARRATIVE: CASE EVENT DATE: 20210901
